FAERS Safety Report 5384907-7 (Version None)
Quarter: 2007Q3

REPORT INFORMATION
  Report Type: 
  Country: None (occurrence: None)
  Receive Date: 20070709
  Receipt Date: 20070629
  Transmission Date: 20080115
  Serious: Yes (Other)
  Sender: FDA-Public Use
  Company Number: 2007BI011187

PATIENT
  Age: 44 Year
  Sex: Female

DRUGS (6)
  1. AVONEX [Suspect]
     Indication: MULTIPLE SCLEROSIS
     Dosage: 30 UG; QW; IM
     Route: 030
     Dates: start: 20020201, end: 20070503
  2. AMANTADINE HCL [Concomitant]
  3. PROZAC [Concomitant]
  4. MIDRIN [Concomitant]
  5. HYDROCHLOROTHIAZIDE [Concomitant]
  6. TOPAMAX [Concomitant]

REACTIONS (1)
  - RECTAL CANCER [None]
